FAERS Safety Report 21419301 (Version 2)
Quarter: 2022Q4

REPORT INFORMATION
  Report Type: Report from Study
  Country: ES (occurrence: ES)
  Receive Date: 20221006
  Receipt Date: 20221011
  Transmission Date: 20230113
  Serious: Yes (Other)
  Sender: FDA-Public Use
  Company Number: ES-ROCHE-3184588

PATIENT
  Age: 56 Year
  Sex: Female
  Weight: 84.9 kg

DRUGS (3)
  1. CARBOPLATIN [Suspect]
     Active Substance: CARBOPLATIN
     Indication: Ovarian cancer
     Dosage: 670 MG
     Route: 042
     Dates: start: 20200311, end: 20200729
  2. DOXORUBICIN HYDROCHLORIDE [Suspect]
     Active Substance: DOXORUBICIN HYDROCHLORIDE
     Indication: Ovarian cancer
     Dosage: 51.3 MG
     Route: 042
     Dates: start: 20200311, end: 20220729
  3. ATEZOLIZUMAB [Suspect]
     Active Substance: ATEZOLIZUMAB
     Indication: Ovarian cancer
     Dosage: UNK
     Route: 042
     Dates: start: 20200311, end: 20220901

REACTIONS (1)
  - Hypothyroidism [Recovered/Resolved]

NARRATIVE: CASE EVENT DATE: 20200602
